FAERS Safety Report 16410502 (Version 11)
Quarter: 2021Q4

REPORT INFORMATION
  Report Type: Spontaneous
  Country: US (occurrence: US)
  Receive Date: 20190610
  Receipt Date: 20211216
  Transmission Date: 20220303
  Serious: Yes (Hospitalization, Other)
  Sender: FDA-Public Use
  Company Number: US-PFIZER INC-2019247631

PATIENT
  Age: 64 Year
  Sex: Male
  Weight: 79.365 kg

DRUGS (1)
  1. CHANTIX [Suspect]
     Active Substance: VARENICLINE TARTRATE
     Indication: Smoking cessation therapy
     Dosage: 10 MG, 2X/DAY

REACTIONS (4)
  - Skin lesion [Unknown]
  - Poor peripheral circulation [Unknown]
  - Drug ineffective [Unknown]
  - Overdose [Unknown]
